FAERS Safety Report 8172233-2 (Version None)
Quarter: 2012Q1

REPORT INFORMATION
  Report Type: 
  Country: None (occurrence: None)
  Receive Date: 20120229
  Receipt Date: 20120222
  Transmission Date: 20120608
  Serious: Yes (Life-Threatening, Hospitalization)
  Sender: FDA-Public Use
  Company Number: DE-BRISTOL-MYERS SQUIBB COMPANY-16284424

PATIENT
  Age: 46 Year
  Sex: Male
  Weight: 47 kg

DRUGS (7)
  1. DOCETAXEL [Suspect]
     Indication: HEAD AND NECK CANCER
     Dosage: STARTED: 12JUL11-UNK 44.19MG-UNK, 22NOV11+23NOV11: 60.48MG.
     Dates: start: 20110712
  2. FLUOROURACIL [Suspect]
     Indication: HEAD AND NECK CANCER
     Dosage: STARTED: 12JUL11-UNK 1104MG, 22NOV11+23NOV11: 1512MG.
     Dates: start: 20110712
  3. DEXAMETHASONE [Concomitant]
     Dosage: 1DF: 8 UNITS NOS.
     Dates: start: 20111122
  4. GRANISETRON HYDROCHLORIDE [Concomitant]
     Dosage: 1DF: 3 UNITS NOS.
     Dates: start: 20111122
  5. FENISTIL [Concomitant]
     Dosage: 1DF: 1 UNITS NOS.
     Dates: start: 20111122
  6. CETUXIMAB [Suspect]
     Indication: HEAD AND NECK CANCER
     Dosage: STARTED 12JUL11-UNK: 368.25MG. 22NOV11+23NOV11: 604.8MG.
     Dates: start: 20110712
  7. CISPLATIN [Suspect]
     Indication: HEAD AND NECK CANCER
     Dosage: STARTED: 12JUL11-UNK 33.14MG, 22NOV11+23NOV11: 45.36MG.
     Dates: start: 20110712

REACTIONS (2)
  - LEUKOPENIA [None]
  - NEUTROPENIA [None]
